FAERS Safety Report 9564083 (Version 3)
Quarter: 2013Q4

REPORT INFORMATION
  Report Type: Report from Study
  Country: GB (occurrence: GB)
  Receive Date: 20130929
  Receipt Date: 20131219
  Transmission Date: 20140711
  Serious: Yes (Hospitalization)
  Sender: FDA-Public Use
  Company Number: GB-AMGEN-GBRCT2013067317

PATIENT
  Age: 86 Year
  Sex: Female

DRUGS (15)
  1. DENOSUMAB [Suspect]
     Indication: OSTEOPOROSIS POSTMENOPAUSAL
     Dosage: 60 MG, Q6MO
     Route: 058
     Dates: start: 20100426
  2. WARFARIN [Concomitant]
     Dosage: 4 MG, QD
     Route: 048
  3. GTN [Concomitant]
  4. AMOXICILLIN [Concomitant]
     Indication: SEPSIS
     Route: 042
  5. GENTAMICIN [Concomitant]
     Indication: SEPSIS
     Route: 042
  6. ASPIRIN [Concomitant]
  7. ADCAL D3 [Concomitant]
     Dosage: 1 DF, QD
     Route: 048
  8. BETAHISTINE [Concomitant]
     Dosage: 16 MG, QD
     Route: 048
  9. BISOPROLOL [Concomitant]
     Dosage: 2.5 MG, QD
     Route: 048
  10. BUMETANIDE [Concomitant]
     Dosage: 2 MG, QD
     Route: 048
  11. OMEPRAZOLE [Concomitant]
     Dosage: 20 MG, QD
     Route: 048
  12. PARACETAMOL [Concomitant]
     Dosage: 500 MG, AS NECESSARY
     Route: 048
  13. QUININE SULPHATE [Concomitant]
     Dosage: 200 MG, QD
     Route: 048
  14. FERROUS FUMARATE [Concomitant]
     Dosage: 210 MG, TID
  15. SIMVASTATIN [Concomitant]
     Dosage: 40 MG, QD
     Route: 048

REACTIONS (1)
  - Angina pectoris [Recovered/Resolved]
